FAERS Safety Report 6414595-X (Version None)
Quarter: 2009Q4

REPORT INFORMATION
  Report Type: 
  Country: None (occurrence: None)
  Receive Date: 20091026
  Receipt Date: 20091014
  Transmission Date: 20100525
  Serious: Yes (Other)
  Sender: FDA-Public Use
  Company Number: GB-JNJCH-2009026160

PATIENT
  Sex: Male

DRUGS (1)
  1. COOL MINT LISTERINE [Suspect]
     Indication: DRUG USE FOR UNKNOWN INDICATION
     Dosage: TEXT:UNSPECIFIED
     Route: 048

REACTIONS (2)
  - OROPHARYNGEAL PAIN [None]
  - POOR QUALITY DRUG ADMINISTERED [None]
